FAERS Safety Report 4317666-7 (Version None)
Quarter: 2004Q1

REPORT INFORMATION
  Report Type: 
  Country: None (occurrence: None)
  Receive Date: 20040315
  Receipt Date: 20020516
  Transmission Date: 20041129
  Serious: Yes (Hospitalization, Disabling)
  Sender: FDA-Public Use
  Company Number: WAES 0205USA01980

PATIENT
  Age: 42 Year
  Sex: Female
  Weight: 133 kg

DRUGS (14)
  1. [THERAPY UNSPECIFIED] [Concomitant]
  2. ELAVIL [Concomitant]
  3. ATENOLOL [Concomitant]
     Indication: HYPERTENSION
  4. ATENOLOL [Concomitant]
     Indication: ATRIAL TACHYCARDIA
  5. LONOX [Concomitant]
  6. DYAZIDE [Concomitant]
  7. HYDROCORTISONE [Concomitant]
  8. ZESTRIL [Concomitant]
     Indication: HYPERTENSION
  9. PAXIL [Concomitant]
  10. VIOXX [Suspect]
     Indication: FIBROMYALGIA
     Route: 048
     Dates: start: 20000728, end: 20001006
  11. VIOXX [Suspect]
     Route: 048
     Dates: start: 20000714, end: 20000815
  12. VIOXX [Suspect]
     Indication: SPONDYLITIS
     Route: 048
     Dates: start: 20000728, end: 20001006
  13. VIOXX [Suspect]
     Route: 048
     Dates: start: 20000714, end: 20000815
  14. TRAZODONE HYDROCHLORIDE [Concomitant]

REACTIONS (103)
  - ABDOMINAL PAIN UPPER [None]
  - ANAL FISSURE [None]
  - ANGINA PECTORIS [None]
  - ANOREXIA [None]
  - ANXIETY [None]
  - ARTHRALGIA [None]
  - ASTHENIA [None]
  - ATRIAL FIBRILLATION [None]
  - ATRIAL TACHYCARDIA [None]
  - AZOTAEMIA [None]
  - BACK INJURY [None]
  - BACK PAIN [None]
  - BALANCE DISORDER [None]
  - BINGE EATING [None]
  - BLOOD ARSENIC INCREASED [None]
  - BLOOD CREATINE PHOSPHOKINASE INCREASED [None]
  - BLOOD PRESSURE DECREASED [None]
  - BRONCHITIS [None]
  - BURSITIS [None]
  - C-REACTIVE PROTEIN INCREASED [None]
  - CARDIAC STRESS TEST ABNORMAL [None]
  - CARDIOMEGALY [None]
  - CHEST PAIN [None]
  - CHEST WALL PAIN [None]
  - CHOKING [None]
  - CONSTIPATION [None]
  - COORDINATION ABNORMAL [None]
  - CORONARY ARTERY DISEASE [None]
  - COUGH [None]
  - CYST [None]
  - DEPRESSION [None]
  - DIABETES MELLITUS [None]
  - DIARRHOEA [None]
  - DIASTOLIC DYSFUNCTION [None]
  - DIFFICULTY IN WALKING [None]
  - DISTURBANCE IN ATTENTION [None]
  - DIZZINESS [None]
  - DIZZINESS POSTURAL [None]
  - DRY THROAT [None]
  - DYSPEPSIA [None]
  - DYSPHAGIA [None]
  - DYSPNOEA [None]
  - EAR PAIN [None]
  - EYE DISORDER [None]
  - FATIGUE [None]
  - FEELING JITTERY [None]
  - FIBROMYALGIA [None]
  - GASTRIC DISORDER [None]
  - GASTROOESOPHAGEAL REFLUX DISEASE [None]
  - HAEMODIALYSIS [None]
  - HAEMORRHAGE [None]
  - HEPATIC STEATOSIS [None]
  - HUNGER [None]
  - HYDRONEPHROSIS [None]
  - HYPERCHOLESTEROLAEMIA [None]
  - HYPERVENTILATION [None]
  - HYPOAESTHESIA [None]
  - HYPOAESTHESIA ORAL [None]
  - HYPOPERFUSION [None]
  - IMPAIRED DRIVING ABILITY [None]
  - INITIAL INSOMNIA [None]
  - INSOMNIA [None]
  - IRRITABLE BOWEL SYNDROME [None]
  - METABOLIC SYNDROME [None]
  - MIGRAINE [None]
  - MUSCLE CRAMP [None]
  - MUSCLE DISORDER [None]
  - MUSCLE RIGIDITY [None]
  - MUSCLE TWITCHING [None]
  - MUSCULAR WEAKNESS [None]
  - MUSCULOSKELETAL PAIN [None]
  - MYALGIA [None]
  - MYASTHENIA GRAVIS [None]
  - NAUSEA [None]
  - NECK PAIN [None]
  - NIGHT SWEATS [None]
  - NOCTURIA [None]
  - PALPITATIONS [None]
  - PANIC ATTACK [None]
  - PERICARDIAL EFFUSION [None]
  - PROCTALGIA [None]
  - RED BLOOD CELL SEDIMENTATION RATE INCREASED [None]
  - RENAL FAILURE ACUTE [None]
  - RESPIRATORY RATE INCREASED [None]
  - RHONCHI [None]
  - SALIVARY HYPERSECRETION [None]
  - SEPTIC SHOCK [None]
  - SHOCK [None]
  - SINUSITIS [None]
  - SOMNOLENCE [None]
  - SPEECH DISORDER [None]
  - SUPRAVENTRICULAR EXTRASYSTOLES [None]
  - TACHYCARDIA [None]
  - TENDONITIS [None]
  - THERAPEUTIC AGENT TOXICITY [None]
  - TINNITUS [None]
  - TREMOR [None]
  - TUBULOINTERSTITIAL NEPHRITIS [None]
  - VENTRICULAR EXTRASYSTOLES [None]
  - VENTRICULAR HYPERTROPHY [None]
  - VISION BLURRED [None]
  - VOMITING [None]
  - WEIGHT DECREASED [None]
